FAERS Safety Report 8510993-9 (Version None)
Quarter: 2012Q3

REPORT INFORMATION
  Report Type: 
  Country: None (occurrence: None)
  Receive Date: 20120716
  Receipt Date: 20120210
  Transmission Date: 20120928
  Serious: Yes (Other)
  Sender: FDA-Public Use
  Company Number: US-JNJCP-30000090589

PATIENT
  Age: 38 Year
  Sex: Female
  Weight: 104 kg

DRUGS (2)
  1. AVEENO BABY CALMING COMFORT LOTION 8OZ USA 381370036456 8137003645USA [Suspect]
     Dosage: QUARTER SIZE AMOUNT, EVERY TWO TO THREE HOURS
     Route: 061
     Dates: end: 20120209
  2. PAIN MEDICATIONS [Concomitant]
     Indication: PAIN

REACTIONS (4)
  - STAPHYLOCOCCAL INFECTION [None]
  - OFF LABEL USE [None]
  - ENTEROBACTER INFECTION [None]
  - ENTEROCOCCAL INFECTION [None]
